FAERS Safety Report 9159353 (Version 1)
Quarter: 2013Q1

REPORT INFORMATION
  Report Type: Spontaneous
  Country: NO (occurrence: None)
  Receive Date: 20130212
  Receipt Date: 20130212
  Transmission Date: 20140127
  Serious: Yes (Other)
  Sender: FDA-Public Use
  Company Number: 2013-02221

PATIENT
  Sex: 0

DRUGS (2)
  1. GABAPENTIN [Suspect]
  2. METOPROLOL [Suspect]

REACTIONS (16)
  - Chronic obstructive pulmonary disease [None]
  - Intermittent claudication [None]
  - Diplopia [None]
  - Dysarthria [None]
  - Dyspnoea [None]
  - Haemorrhage [None]
  - Muscular weakness [None]
  - Myasthenia gravis [None]
  - Myocardial infarction [None]
  - Pneumothorax [None]
  - Eyelid ptosis [None]
  - PCO2 increased [None]
  - General physical health deterioration [None]
  - Thymoma [None]
  - Thymus enlargement [None]
  - Pneumonia [None]
